FAERS Safety Report 9272825 (Version 1)
Quarter: 2013Q2

REPORT INFORMATION
  Report Type: Spontaneous
  Country: US (occurrence: US)
  Receive Date: 20130506
  Receipt Date: 20130506
  Transmission Date: 20140414
  Serious: No
  Sender: FDA-Public Use
  Company Number: US-ASTRAZENECA-2012SE30388

PATIENT
  Age: 65 Year
  Sex: Female

DRUGS (8)
  1. PRILOSEC OTC [Suspect]
     Indication: HYPERSENSITIVITY
     Route: 048
     Dates: start: 20120501, end: 20120501
  2. PRILOSEC OTC [Suspect]
     Indication: HYPERSENSITIVITY
     Route: 048
  3. FLEXERIL [Concomitant]
  4. MALICON [Concomitant]
  5. SLEEPING PILLS [Concomitant]
  6. ASPIRIN [Concomitant]
  7. ANTIBIOTICS [Concomitant]
  8. ANTIHISTAMINES [Concomitant]

REACTIONS (4)
  - Dyspnoea [Recovered/Resolved]
  - Asthma [Recovered/Resolved]
  - Rash [Recovered/Resolved]
  - Off label use [Unknown]
